FAERS Safety Report 20007725 (Version 8)
Quarter: 2022Q1

REPORT INFORMATION
  Report Type: Report from Study
  Country: SG (occurrence: SG)
  Receive Date: 20211029
  Receipt Date: 20220322
  Transmission Date: 20220423
  Serious: Yes (Death, Life-Threatening, Hospitalization, Other)
  Sender: FDA-Public Use
  Company Number: SG-NOVARTISPH-NVSC2021SG241455

PATIENT
  Age: 70 Year
  Sex: Female
  Weight: 50.5 kg

DRUGS (3)
  1. KYMRIAH [Suspect]
     Active Substance: TISAGENLECLEUCEL
     Indication: Diffuse large B-cell lymphoma
     Dosage: 4.4X10E8 CELLS, ONCE/SINGLE
     Route: 041
     Dates: start: 20210209
  2. FLUDARABINE [Concomitant]
     Active Substance: FLUDARABINE PHOSPHATE
     Indication: Product used for unknown indication
     Dosage: UNK
     Route: 065
  3. CYCLOPHOSPHAMIDE [Concomitant]
     Active Substance: CYCLOPHOSPHAMIDE
     Indication: Product used for unknown indication
     Dosage: UNK
     Route: 065

REACTIONS (28)
  - Toxic encephalopathy [Fatal]
  - Diffuse large B-cell lymphoma [Fatal]
  - Malignant neoplasm progression [Fatal]
  - Immune effector cell-associated neurotoxicity syndrome [Not Recovered/Not Resolved]
  - Feeding disorder [Unknown]
  - Somnolence [Unknown]
  - Myoclonus [Unknown]
  - Lethargy [Unknown]
  - Dysgraphia [Unknown]
  - Unresponsive to stimuli [Unknown]
  - Aphasia [Not Recovered/Not Resolved]
  - Resting tremor [Unknown]
  - Encephalitis [Not Recovered/Not Resolved]
  - Subdural haemorrhage [Unknown]
  - Immune effector cell-associated neurotoxicity syndrome [Recovered/Resolved]
  - Dysgraphia [Recovered/Resolved]
  - Mental impairment [Recovered/Resolved]
  - Cytokine release syndrome [Recovered/Resolved]
  - Hypotension [Unknown]
  - Pyrexia [Recovered/Resolved]
  - Urinary tract infection [Recovered/Resolved]
  - Pyrexia [Not Recovered/Not Resolved]
  - Urinary incontinence [Recovered/Resolved]
  - Constipation [Recovered/Resolved]
  - Subdural haemorrhage [Recovered/Resolved]
  - Cellulitis orbital [Recovering/Resolving]
  - Pneumonia klebsiella [Unknown]
  - HIV test false positive [Unknown]

NARRATIVE: CASE EVENT DATE: 20210209
